FAERS Safety Report 4732300-X (Version None)
Quarter: 2005Q3

REPORT INFORMATION
  Report Type: 
  Country: None (occurrence: None)
  Receive Date: 20050726
  Receipt Date: 20050127
  Transmission Date: 20060218
  Serious: Yes (Hospitalization)
  Sender: FDA-Public Use
  Company Number: 05GER0048

PATIENT

DRUGS (1)
  1. AGGRASTAT [Suspect]
     Dosage: ^COMMON DOSE^
     Dates: start: 20050125, end: 20050126

REACTIONS (1)
  - THROMBOCYTOPENIA [None]
